FAERS Safety Report 11788824 (Version 1)
Quarter: 2015Q4

REPORT INFORMATION
  Report Type: Spontaneous
  Country: US (occurrence: US)
  Receive Date: 20151201
  Receipt Date: 20151201
  Transmission Date: 20160314
  Serious: Yes (Hospitalization)
  Sender: FDA-Public Use
  Company Number: US-AUROBINDO-AUR-APL-2015-10776

PATIENT
  Age: 50 Year
  Sex: Male

DRUGS (9)
  1. CLOZAPINE. [Interacting]
     Active Substance: CLOZAPINE
     Dosage: 400 MG, AT BED TIME
     Route: 065
  2. CLOZAPINE. [Interacting]
     Active Substance: CLOZAPINE
     Indication: PRODUCT USED FOR UNKNOWN INDICATION
     Dosage: 200 MG, ONCE A DAY (ONCE IN THE AFTERNOON)
     Route: 065
  3. FERROUS SULFATE [Interacting]
     Active Substance: FERROUS SULFATE\FERROUS SULFATE, DRIED
     Indication: PRODUCT USED FOR UNKNOWN INDICATION
     Dosage: 325 MG, ONCE A DAY
     Route: 065
  4. SOLIFENACIN [Interacting]
     Active Substance: SOLIFENACIN
     Indication: PRODUCT USED FOR UNKNOWN INDICATION
     Dosage: 5 MG, ONCE A DAY
     Route: 065
  5. VALPROATE [Interacting]
     Active Substance: VALPROATE SODIUM
     Indication: PRODUCT USED FOR UNKNOWN INDICATION
     Dosage: 2000 MG, ONCE A DAY
     Route: 065
  6. OLANZAPINE. [Interacting]
     Active Substance: OLANZAPINE
     Indication: PSYCHOTIC DISORDER
     Dosage: 120 MG, TOTAL
     Route: 065
  7. OLANZAPINE. [Interacting]
     Active Substance: OLANZAPINE
     Indication: AGITATION
  8. LISINOPRIL 10MG [Suspect]
     Active Substance: LISINOPRIL
     Indication: PRODUCT USED FOR UNKNOWN INDICATION
     Dosage: 10 MG, UNK
     Route: 065
  9. OMEPRAZOLE 20MG [Interacting]
     Active Substance: OMEPRAZOLE
     Indication: PRODUCT USED FOR UNKNOWN INDICATION
     Dosage: 20 MG, ONCE A DAY
     Route: 065

REACTIONS (13)
  - Acute kidney injury [Recovered/Resolved]
  - Delirium [Recovered/Resolved]
  - Mental status changes [Recovered/Resolved]
  - Disinhibition [Recovered/Resolved]
  - Disorientation [Recovered/Resolved]
  - Drug level increased [Recovered/Resolved]
  - Constipation [Recovered/Resolved]
  - Drug interaction [Recovered/Resolved]
  - Gastrointestinal hypomotility [Recovered/Resolved]
  - Hypernatraemia [Recovered/Resolved]
  - Abdominal distension [Recovered/Resolved]
  - Glomerular filtration rate decreased [Recovered/Resolved]
  - Speech disorder [Recovered/Resolved]
